FAERS Safety Report 8112476-7 (Version None)
Quarter: 2012Q1

REPORT INFORMATION
  Report Type: 
  Country: None (occurrence: None)
  Receive Date: 20120131
  Receipt Date: 20120120
  Transmission Date: 20120608
  Serious: Yes (Hospitalization)
  Sender: FDA-Public Use
  Company Number: 2012010115

PATIENT
  Age: 29 Year
  Sex: Female

DRUGS (1)
  1. MESALAMINE [Suspect]
     Indication: CROHN'S DISEASE

REACTIONS (12)
  - PLEURAL EFFUSION [None]
  - PLEURITIC PAIN [None]
  - WHITE BLOOD CELL COUNT INCREASED [None]
  - SINUS TACHYCARDIA [None]
  - RESPIRATORY RATE INCREASED [None]
  - PRODUCT LABEL ISSUE [None]
  - DYSPNOEA [None]
  - OROPHARYNGEAL PAIN [None]
  - CARDIOMEGALY [None]
  - PERICARDIAL EFFUSION [None]
  - INFLAMMATION [None]
  - NO THERAPEUTIC RESPONSE [None]
